FAERS Safety Report 6087145-8 (Version None)
Quarter: 2009Q1

REPORT INFORMATION
  Report Type: 
  Country: None (occurrence: None)
  Receive Date: 20090219
  Receipt Date: 20081023
  Transmission Date: 20090719
  Serious: No
  Sender: FDA-Public Use
  Company Number: WAES 0810USA04400

PATIENT
  Sex: Female

DRUGS (3)
  1. ISENTRESS [Suspect]
     Indication: HIV INFECTION
     Dosage: 400 MG/BID/PO
     Route: 048
  2. CRIXIVAN [Concomitant]
  3. TRUVADA [Concomitant]

REACTIONS (2)
  - DIARRHOEA [None]
  - HYPOKALAEMIA [None]
